FAERS Safety Report 9936991 (Version 2)
Quarter: 2014Q4

REPORT INFORMATION
  Report Type: Spontaneous
  Country: US (occurrence: None)
  Receive Date: 20140115
  Receipt Date: 20141015
  Transmission Date: 20150529
  Serious: Yes (Other)
  Sender: FDA-Public Use
  Company Number: 2013US002533

PATIENT
  Age: 82 Year
  Sex: Male
  Weight: 73 kg

DRUGS (9)
  1. FENTANYL (FENTANYL) [Concomitant]
     Active Substance: FENTANYL
  2. AMLODIPINE [Concomitant]
     Active Substance: AMLODIPINE BESYLATE
  3. GABAPENTIN (GABAPENTIN) [Concomitant]
     Active Substance: GABAPENTIN
  4. METOPROLOL (METOPROLOL) [Concomitant]
     Active Substance: METOPROLOL
  5. STOOL SOFTENER (DOCUSATE SODIUM) [Concomitant]
     Active Substance: DOCUSATE SODIUM
  6. GLIPIZIDE (GLIPIZIDE) [Concomitant]
     Active Substance: GLIPIZIDE
  7. MAGNESIUM CITRATE (MAGNESIUM CITRATE) [Concomitant]
  8. ONDANSETRON. [Concomitant]
     Active Substance: ONDANSETRON
  9. ICLUSIG [Suspect]
     Active Substance: PONATINIB
     Indication: CHRONIC MYELOID LEUKAEMIA
     Route: 048
     Dates: start: 20130726

REACTIONS (8)
  - Impaired healing [None]
  - Disease progression [None]
  - Skin disorder [None]
  - Wound [None]
  - Neuropathy peripheral [None]
  - Asthenia [None]
  - General physical health deterioration [None]
  - Drug ineffective [None]
